FAERS Safety Report 21272766 (Version 5)
Quarter: 2023Q2

REPORT INFORMATION
  Report Type: Other
  Country: CA (occurrence: CA)
  Receive Date: 20220831
  Receipt Date: 20230524
  Transmission Date: 20230722
  Serious: Yes (Other)
  Sender: FDA-Public Use
  Company Number: CA-TOLMAR, INC.-22CA036311

PATIENT
  Age: 77 Year
  Sex: Male

DRUGS (42)
  1. ELIGARD [Suspect]
     Active Substance: LEUPROLIDE ACETATE
     Indication: Prostate cancer
     Dosage: 22.5 MILLIGRAM, Q 3 MONTH
     Route: 058
     Dates: start: 20220824
  2. ELIGARD [Suspect]
     Active Substance: LEUPROLIDE ACETATE
     Dosage: 22.5 MILLIGRAM, Q 3 MONTH
     Route: 058
     Dates: start: 20221115
  3. ELIGARD [Suspect]
     Active Substance: LEUPROLIDE ACETATE
     Dosage: 22.5 MILLIGRAM, Q 3 MONTH
     Route: 058
     Dates: start: 20230207
  4. ELIGARD [Suspect]
     Active Substance: LEUPROLIDE ACETATE
     Dosage: 22.5 MILLIGRAM, Q 3 MONTH
     Route: 058
     Dates: start: 20230502
  5. RADIATION THERAPY [Suspect]
     Active Substance: RADIATION THERAPY
     Indication: Vocal cord thickening
     Dosage: UNK
     Dates: start: 20221117
  6. RADIATION THERAPY [Suspect]
     Active Substance: RADIATION THERAPY
     Dosage: UNK
  7. RADIATION THERAPY [Suspect]
     Active Substance: RADIATION THERAPY
     Dosage: UNK
     Dates: start: 20221117, end: 20230119
  8. RADIATION THERAPY [Suspect]
     Active Substance: RADIATION THERAPY
     Dosage: UNK
  9. RADIATION THERAPY [Suspect]
     Active Substance: RADIATION THERAPY
     Dosage: UNK
  10. RADIATION THERAPY [Suspect]
     Active Substance: RADIATION THERAPY
     Dosage: UNK
  11. RADIATION THERAPY [Suspect]
     Active Substance: RADIATION THERAPY
     Dosage: UNK
  12. RADIATION THERAPY [Suspect]
     Active Substance: RADIATION THERAPY
     Dosage: UNK
  13. RADIATION THERAPY [Suspect]
     Active Substance: RADIATION THERAPY
     Dosage: UNK
  14. RADIATION THERAPY [Suspect]
     Active Substance: RADIATION THERAPY
     Dosage: UNK
  15. RADIATION THERAPY [Suspect]
     Active Substance: RADIATION THERAPY
     Dosage: UNK
  16. RADIATION THERAPY [Suspect]
     Active Substance: RADIATION THERAPY
     Dosage: UNK
  17. RADIATION THERAPY [Suspect]
     Active Substance: RADIATION THERAPY
     Dosage: UNK
  18. RADIATION THERAPY [Suspect]
     Active Substance: RADIATION THERAPY
     Dosage: UNK
  19. RADIATION THERAPY [Suspect]
     Active Substance: RADIATION THERAPY
     Dosage: UNK
  20. RADIATION THERAPY [Suspect]
     Active Substance: RADIATION THERAPY
     Dosage: UNK
  21. RADIATION THERAPY [Suspect]
     Active Substance: RADIATION THERAPY
     Dosage: UNK
  22. RADIATION THERAPY [Suspect]
     Active Substance: RADIATION THERAPY
     Dosage: UNK
  23. RADIATION THERAPY [Suspect]
     Active Substance: RADIATION THERAPY
     Dosage: UNK
  24. RADIATION THERAPY [Suspect]
     Active Substance: RADIATION THERAPY
     Dosage: UNK
  25. RADIATION THERAPY [Suspect]
     Active Substance: RADIATION THERAPY
     Dosage: UNK
  26. RADIATION THERAPY [Suspect]
     Active Substance: RADIATION THERAPY
     Dosage: UNK
  27. RADIATION THERAPY [Suspect]
     Active Substance: RADIATION THERAPY
     Dosage: UNK
  28. RADIATION THERAPY [Suspect]
     Active Substance: RADIATION THERAPY
     Dosage: UNK
  29. RADIATION THERAPY [Suspect]
     Active Substance: RADIATION THERAPY
     Dosage: UNK
  30. RADIATION THERAPY [Suspect]
     Active Substance: RADIATION THERAPY
     Dosage: UNK
  31. RADIATION THERAPY [Suspect]
     Active Substance: RADIATION THERAPY
     Dosage: UNK
  32. RADIATION THERAPY [Suspect]
     Active Substance: RADIATION THERAPY
     Dosage: UNK
  33. RADIATION THERAPY [Suspect]
     Active Substance: RADIATION THERAPY
     Dosage: UNK
  34. RADIATION THERAPY [Suspect]
     Active Substance: RADIATION THERAPY
     Dosage: UNK
  35. RADIATION THERAPY [Suspect]
     Active Substance: RADIATION THERAPY
     Dosage: UNK
  36. RADIATION THERAPY [Suspect]
     Active Substance: RADIATION THERAPY
     Dosage: UNK
  37. RADIATION THERAPY [Suspect]
     Active Substance: RADIATION THERAPY
     Dosage: UNK
  38. RADIATION THERAPY [Suspect]
     Active Substance: RADIATION THERAPY
     Dosage: UNK
  39. RADIATION THERAPY [Suspect]
     Active Substance: RADIATION THERAPY
     Dosage: UNK
  40. RADIATION THERAPY [Suspect]
     Active Substance: RADIATION THERAPY
     Dosage: UNK
  41. RADIATION THERAPY [Suspect]
     Active Substance: RADIATION THERAPY
     Dosage: UNK
  42. RADIATION THERAPY [Suspect]
     Active Substance: RADIATION THERAPY
     Dosage: UNK
     Dates: start: 20230119

REACTIONS (7)
  - Vocal cord thickening [Unknown]
  - Prostatic specific antigen abnormal [Recovered/Resolved]
  - Feeling hot [Unknown]
  - Injection site pain [Recovered/Resolved]
  - Libido decreased [Unknown]
  - Fatigue [Recovering/Resolving]
  - Asthenia [Recovering/Resolving]

NARRATIVE: CASE EVENT DATE: 20220824
